FAERS Safety Report 4792244-4 (Version None)
Quarter: 2005Q4

REPORT INFORMATION
  Report Type: 
  Country: None (occurrence: None)
  Receive Date: 20051007
  Receipt Date: 20050929
  Transmission Date: 20060501
  Serious: Yes (Hospitalization, Other)
  Sender: FDA-Public Use
  Company Number: US-MERCK-0510USA00695

PATIENT
  Age: 67 Year
  Sex: Female
  Weight: 80 kg

DRUGS (8)
  1. VIOXX [Suspect]
     Indication: BACK PAIN
     Route: 048
     Dates: start: 19991106, end: 20020918
  2. VIOXX [Suspect]
     Route: 048
     Dates: start: 19991106, end: 20020918
  3. LIPITOR [Concomitant]
     Route: 065
  4. LOPRESSOR [Concomitant]
     Route: 065
  5. EVISTA [Concomitant]
     Route: 065
  6. ASPIRIN [Concomitant]
     Route: 065
  7. VERAPAMIL MSD LP [Concomitant]
     Route: 048
  8. CALCIUM (UNSPECIFIED) [Concomitant]
     Route: 065

REACTIONS (17)
  - AORTIC OCCLUSION [None]
  - ARTHRALGIA [None]
  - CAROTID ARTERY STENOSIS [None]
  - CEREBROVASCULAR ACCIDENT [None]
  - DIABETES MELLITUS NON-INSULIN-DEPENDENT [None]
  - HYPERCHOLESTEROLAEMIA [None]
  - HYPERLIPIDAEMIA [None]
  - ILIAC ARTERY STENOSIS [None]
  - INTERMITTENT CLAUDICATION [None]
  - LERICHE SYNDROME [None]
  - MYOCARDIAL INFARCTION [None]
  - MYOCARDIAL ISCHAEMIA [None]
  - NEUROPATHY [None]
  - OSTEOPENIA [None]
  - PERIPHERAL VASCULAR DISORDER [None]
  - POST PROCEDURAL COMPLICATION [None]
  - SCIATICA [None]
